FAERS Safety Report 4355208-0 (Version None)
Quarter: 2004Q2

REPORT INFORMATION
  Report Type: 
  Country: None (occurrence: None)
  Receive Date: 20040504
  Receipt Date: 20040426
  Transmission Date: 20050107
  Serious: Yes (Other)
  Sender: FDA-Public Use
  Company Number: K200400461

PATIENT
  Age: 23 Year
  Sex: Female

DRUGS (3)
  1. NORDETTE-21 [Suspect]
     Indication: ORAL CONTRACEPTION
     Dosage: 1 TABLET, QD, ORAL
     Route: 048
     Dates: start: 20040310, end: 20040315
  2. UNSPECIFIED INTRAVENOUS DRUG (UNSPECIFIED INTRAVENOUS DRUG) [Suspect]
     Dosage: INTRAVENOUS
     Route: 042
     Dates: start: 20040314
  3. DORIL (CAFFEINE, ACETYLSALICYLIC ACID) [Concomitant]

REACTIONS (5)
  - DRUG HYPERSENSITIVITY [None]
  - HEADACHE [None]
  - HYPOAESTHESIA [None]
  - VISION BLURRED [None]
  - VOMITING [None]
